FAERS Safety Report 7794156-0 (Version None)
Quarter: 2011Q4

REPORT INFORMATION
  Report Type: 
  Country: None (occurrence: None)
  Receive Date: 20111004
  Receipt Date: 20110920
  Transmission Date: 20120403
  Serious: Yes (Other)
  Sender: FDA-Public Use
  Company Number: US-ELI_LILLY_AND_COMPANY-US201109006445

PATIENT
  Sex: Male

DRUGS (1)
  1. EXENATIDE [Suspect]
     Indication: DEMENTIA ALZHEIMER'S TYPE
     Dosage: 5 UG, BID
     Route: 058
     Dates: start: 20110322, end: 20110329

REACTIONS (1)
  - PANCREATIC ENZYMES INCREASED [None]
